FAERS Safety Report 9336285 (Version 1)
Quarter: 2013Q2

REPORT INFORMATION
  Report Type: Spontaneous
  Country: FR (occurrence: FR)
  Receive Date: 20130607
  Receipt Date: 20130607
  Transmission Date: 20140414
  Serious: Yes (Hospitalization)
  Sender: FDA-Public Use
  Company Number: FR-ABBOTT-13X-056-1099791-00

PATIENT
  Age: 59 Year
  Sex: Male

DRUGS (6)
  1. ODRIK [Suspect]
     Indication: HYPERTENSION
     Route: 048
  2. METHOTREXATE [Suspect]
     Indication: PSORIASIS
     Dates: start: 201111
  3. SPECIAFOLDINE [Suspect]
     Indication: PRODUCT USED FOR UNKNOWN INDICATION
     Route: 048
     Dates: start: 201011
  4. TAHOR [Suspect]
     Indication: PRODUCT USED FOR UNKNOWN INDICATION
     Route: 048
     Dates: start: 201011
  5. DIPROSONE [Suspect]
     Indication: PRODUCT USED FOR UNKNOWN INDICATION
     Dates: start: 201011
  6. FLUVASTATINE [Concomitant]
     Indication: PRODUCT USED FOR UNKNOWN INDICATION
     Route: 048

REACTIONS (3)
  - Squamous cell carcinoma [Recovered/Resolved]
  - Hyperplasia [Recovered/Resolved]
  - Skin disorder [Recovered/Resolved]
